FAERS Safety Report 6789075-2 (Version None)
Quarter: 2010Q2

REPORT INFORMATION
  Report Type: 
  Country: None (occurrence: None)
  Receive Date: 20100623
  Receipt Date: 20080916
  Transmission Date: 20101027
  Serious: No
  Sender: FDA-Public Use
  Company Number: US-PFIZER INC-2008049053

PATIENT
  Sex: Female
  Weight: 56.8 kg

DRUGS (3)
  1. DEPO-PROVERA SUSPENSION/INJ [Suspect]
     Indication: CONTRACEPTION
     Dates: start: 20080515, end: 20080807
  2. ALL OTHER THERAPEUTIC PRODUCTS [Concomitant]
     Indication: URINARY TRACT INFECTION
     Dates: start: 20080101, end: 20080101
  3. NAPROXEN [Concomitant]

REACTIONS (1)
  - PELVIC PAIN [None]
